FAERS Safety Report 23053605 (Version 1)
Quarter: 2023Q4

REPORT INFORMATION
  Report Type: Report from Study
  Country: BR (occurrence: BR)
  Receive Date: 20231011
  Receipt Date: 20231011
  Transmission Date: 20240110
  Serious: Yes (Other)
  Sender: FDA-Public Use
  Company Number: BR-002147023-NVSC2023BR216873

PATIENT
  Age: 48 Year
  Sex: Female

DRUGS (1)
  1. COSENTYX [Suspect]
     Active Substance: SECUKINUMAB
     Indication: Product used for unknown indication
     Dosage: UNK
     Route: 065

REACTIONS (7)
  - Autoimmune disorder [Not Recovered/Not Resolved]
  - Depression [Unknown]
  - Swelling [Unknown]
  - Pain [Unknown]
  - Hypertension [Unknown]
  - Illness [Unknown]
  - Anxiety [Unknown]
